FAERS Safety Report 14205098 (Version 1)
Quarter: 2017Q4

REPORT INFORMATION
  Report Type: Spontaneous
  Country: JP (occurrence: JP)
  Receive Date: 20171120
  Receipt Date: 20171120
  Transmission Date: 20180321
  Serious: Yes (Other)
  Sender: FDA-Public Use
  Company Number: JP-ROCHE-2025540

PATIENT
  Sex: Male

DRUGS (1)
  1. RIVOTRIL [Suspect]
     Active Substance: CLONAZEPAM
     Indication: DYSTONIA
     Route: 048
     Dates: start: 2015

REACTIONS (7)
  - Aspiration [Unknown]
  - Thirst [Unknown]
  - Vomiting [Unknown]
  - Dizziness [Unknown]
  - Dyspnoea [Unknown]
  - Sensation of foreign body [Unknown]
  - Nausea [Unknown]

NARRATIVE: CASE EVENT DATE: 2017
